FAERS Safety Report 5944684-5 (Version None)
Quarter: 2008Q4

REPORT INFORMATION
  Report Type: 
  Country: None (occurrence: None)
  Receive Date: 20081107
  Receipt Date: 20081028
  Transmission Date: 20090506
  Serious: Yes (Hospitalization)
  Sender: FDA-Public Use
  Company Number: JP-JNJFOC-20081003545

PATIENT
  Sex: Female
  Weight: 41 kg

DRUGS (3)
  1. REMICADE [Suspect]
     Dosage: A TOTAL OF 4 DOSES
     Route: 042
  2. REMICADE [Suspect]
     Dosage: TWO INFUSIONS ON UNKNOWN DATES
     Route: 042
  3. REMICADE [Suspect]
     Indication: CROHN'S DISEASE
     Route: 042

REACTIONS (4)
  - ACINETOBACTER INFECTION [None]
  - DISSEMINATED INTRAVASCULAR COAGULATION [None]
  - SEPSIS [None]
  - SEPTIC SHOCK [None]
